FAERS Safety Report 8926623 (Version 1)
Quarter: 2012Q4

REPORT INFORMATION
  Report Type: 
  Country: CH (occurrence: CH)
  Receive Date: 20121127
  Receipt Date: 20121127
  Transmission Date: 20130627
  Serious: Yes (Other)
  Sender: FDA-Public Use
  Company Number: CH-PFIZER INC-2012293696

PATIENT
  Age: 52 Year
  Sex: Female

DRUGS (5)
  1. AROMASIN [Suspect]
     Dosage: 25 mg, 1x/day
     Route: 048
     Dates: start: 20121001, end: 20121014
  2. CITALOPRAM [Concomitant]
     Dosage: 20 mg, 1x/day
     Route: 048
     Dates: end: 20120715
  3. CITALOPRAM [Concomitant]
     Dosage: 40 mg, 1x/day
     Route: 048
     Dates: start: 20120716
  4. XANAX [Concomitant]
     Dosage: 0.5 mg, as needed
     Route: 048
  5. XANAX [Concomitant]
     Dosage: 0.5 mg, 3x/day
     Route: 048

REACTIONS (2)
  - Depersonalisation [Recovered/Resolved]
  - Depression [Not Recovered/Not Resolved]
